FAERS Safety Report 15552368 (Version 4)
Quarter: 2021Q1

REPORT INFORMATION
  Report Type: Spontaneous
  Country: US (occurrence: US)
  Receive Date: 20181025
  Receipt Date: 20210208
  Transmission Date: 20210419
  Serious: No
  Sender: FDA-Public Use
  Company Number: US-LUNDBECK-DKLU2056048

PATIENT
  Age: 59 Year
  Sex: Male

DRUGS (10)
  1. MIDODRINE [Concomitant]
     Active Substance: MIDODRINE
     Indication: PRODUCT USED FOR UNKNOWN INDICATION
     Route: 065
  2. NORTHERA [Suspect]
     Active Substance: DROXIDOPA
     Indication: ORTHOSTATIC HYPOTENSION
     Dosage: SCHEDULE A, TITRATING
     Route: 048
     Dates: start: 201810
  3. NORTHERA [Suspect]
     Active Substance: DROXIDOPA
     Dosage: SCHEDULE A, TITRATING
     Route: 048
     Dates: start: 201810
  4. NORTHERA [Suspect]
     Active Substance: DROXIDOPA
     Indication: AUTONOMIC NEUROPATHY
     Dosage: SCHEDULE A, TITRATION COMPLETE
     Route: 048
     Dates: start: 20181023
  5. NORTHERA [Suspect]
     Active Substance: DROXIDOPA
     Route: 048
     Dates: start: 20181023
  6. NORTHERA [Suspect]
     Active Substance: DROXIDOPA
     Dosage: SCHEDULE A, TITRATING
     Route: 048
     Dates: start: 201810
  7. NORTHERA [Suspect]
     Active Substance: DROXIDOPA
     Dosage: SCHEDULE A, TITRATING
     Route: 048
     Dates: start: 201810
  8. NORTHERA [Suspect]
     Active Substance: DROXIDOPA
     Route: 048
  9. NORTHERA [Suspect]
     Active Substance: DROXIDOPA
     Dosage: SCHEDULE A, TITRATING
     Route: 048
     Dates: start: 201810
  10. NORTHERA [Suspect]
     Active Substance: DROXIDOPA
     Route: 048

REACTIONS (7)
  - Epistaxis [Unknown]
  - Incorrect dose administered [Unknown]
  - Headache [Unknown]
  - Chest discomfort [Unknown]
  - Blood pressure increased [Unknown]
  - Dizziness [Recovered/Resolved]
  - Vision blurred [Unknown]

NARRATIVE: CASE EVENT DATE: 201810
